FAERS Safety Report 5715953-9 (Version None)
Quarter: 2008Q2

REPORT INFORMATION
  Report Type: 
  Country: None (occurrence: None)
  Receive Date: 20080422
  Receipt Date: 20080411
  Transmission Date: 20081010
  Serious: Yes (Other)
  Sender: FDA-Public Use
  Company Number: 2008AP000898

PATIENT
  Age: 56 Year
  Sex: Male

DRUGS (6)
  1. CITALOPRAM HYDROBROMIDE [Suspect]
     Indication: DEPRESSION
     Dosage: 10 MG; UNK; PO; UNK
     Route: 048
     Dates: start: 20051205
  2. LORAZEPAM [Concomitant]
  3. NICOTINE [Concomitant]
  4. PIPERAZINE (PIPERAZINE) [Concomitant]
  5. ACETAMINOPHEN [Concomitant]
  6. AMITRIPTLINE HCL [Concomitant]

REACTIONS (7)
  - AGGRESSION [None]
  - AGITATION [None]
  - ALCOHOL INTERACTION [None]
  - CONFUSIONAL STATE [None]
  - DEREALISATION [None]
  - MEMORY IMPAIRMENT [None]
  - PANIC REACTION [None]
